FAERS Safety Report 8185251-5 (Version None)
Quarter: 2012Q1

REPORT INFORMATION
  Report Type: 
  Country: None (occurrence: None)
  Receive Date: 20120305
  Receipt Date: 20120221
  Transmission Date: 20120608
  Serious: Yes (Other)
  Sender: FDA-Public Use
  Company Number: DE-UCBSA-052034

PATIENT
  Sex: Female

DRUGS (6)
  1. LORATADINE [Concomitant]
     Indication: RHINITIS ALLERGIC
     Route: 048
     Dates: start: 20110307
  2. CERTOLIZUMAB PEGOL [Suspect]
     Indication: SPONDYLITIS
     Dosage: 400MG
  3. ARCOXIA [Concomitant]
     Indication: SPONDYLITIS
     Route: 048
     Dates: start: 20110723
  4. PANTOPRAZOLE [Concomitant]
     Indication: GASTROINTESTINAL DISORDER
     Route: 048
     Dates: start: 20080101
  5. RAMIPRIL [Concomitant]
     Indication: HYPERTONIA
     Route: 048
     Dates: start: 20110622
  6. LORATADINE [Concomitant]
     Indication: ACHROMOTRICHIA ACQUIRED
     Route: 048
     Dates: start: 20110307

REACTIONS (3)
  - ABORTION [None]
  - PREGNANCY [None]
  - EXPOSURE VIA SEMEN [None]
